FAERS Safety Report 9154981 (Version 1)
Quarter: 2013Q1

REPORT INFORMATION
  Report Type: Spontaneous
  Country: GB (occurrence: None)
  Receive Date: 20130208
  Receipt Date: 20130208
  Transmission Date: 20140127
  Serious: Yes (Other)
  Sender: FDA-Public Use
  Company Number: FD201300308

PATIENT
  Age: 42 Year
  Sex: Female
  Weight: 69.85 kg

DRUGS (5)
  1. MANNITOL [Suspect]
     Indication: PRODUCT USED FOR UNKNOWN INDICATION
     Route: 042
     Dates: start: 20130116, end: 20130116
  2. BUSCOPAN (BUSCOPAN COMP.) [Suspect]
     Indication: PRODUCT USED FOR UNKNOWN INDICATION
     Route: 042
     Dates: start: 20130116, end: 20130116
  3. CAROBEL [Suspect]
     Indication: PRODUCT USED FOR UNKNOWN INDICATION
     Route: 042
     Dates: start: 20130116, end: 20130116
  4. DOTAREM (MEGLUMINE GADOTERATE) [Suspect]
     Indication: PRODUCT USED FOR UNKNOWN INDICATION
     Route: 042
     Dates: start: 20130116, end: 20130116
  5. METOCLOPRAMIDE (METOCLOPRAMIDE) [Suspect]
     Indication: PRODUCT USED FOR UNKNOWN INDICATION
     Dates: start: 20130116, end: 20130116

REACTIONS (2)
  - Dyspnoea [None]
  - Rash erythematous [None]
